FAERS Safety Report 25369085 (Version 1)
Quarter: 2025Q2

REPORT INFORMATION
  Report Type: Spontaneous
  Country: AU (occurrence: AU)
  Receive Date: 20250528
  Receipt Date: 20250528
  Transmission Date: 20250717
  Serious: Yes (Other)
  Sender: CSL BEHRING
  Company Number: AU-BEH-2025205082

PATIENT
  Age: 21 Year
  Sex: Female

DRUGS (12)
  1. BERINERT [Suspect]
     Active Substance: HUMAN C1-ESTERASE INHIBITOR
     Indication: Hereditary angioedema
     Route: 065
  2. BERINERT [Suspect]
     Active Substance: HUMAN C1-ESTERASE INHIBITOR
     Indication: Hereditary angioedema
     Route: 065
  3. BERINERT [Suspect]
     Active Substance: HUMAN C1-ESTERASE INHIBITOR
     Indication: Prophylaxis
     Route: 042
  4. BERINERT [Suspect]
     Active Substance: HUMAN C1-ESTERASE INHIBITOR
     Indication: Prophylaxis
     Route: 042
  5. BERINERT [Suspect]
     Active Substance: HUMAN C1-ESTERASE INHIBITOR
     Route: 058
  6. BERINERT [Suspect]
     Active Substance: HUMAN C1-ESTERASE INHIBITOR
     Route: 058
  7. BERINERT [Suspect]
     Active Substance: HUMAN C1-ESTERASE INHIBITOR
     Route: 065
  8. BERINERT [Suspect]
     Active Substance: HUMAN C1-ESTERASE INHIBITOR
     Route: 065
  9. BERINERT [Suspect]
     Active Substance: HUMAN C1-ESTERASE INHIBITOR
     Route: 058
  10. BERINERT [Suspect]
     Active Substance: HUMAN C1-ESTERASE INHIBITOR
     Route: 058
  11. DUPIXENT [Suspect]
     Active Substance: DUPILUMAB
     Indication: Dermatitis atopic
     Route: 065
  12. LANADELUMAB [Concomitant]
     Active Substance: LANADELUMAB

REACTIONS (21)
  - Hereditary angioedema [Recovering/Resolving]
  - Appendicitis [Unknown]
  - Drug ineffective [Unknown]
  - Dermatitis atopic [Unknown]
  - Flushing [Recovered/Resolved]
  - Underweight [Unknown]
  - Infusion site pain [Unknown]
  - Injection site discolouration [Unknown]
  - Injection site pain [Unknown]
  - Ocular hyperaemia [Recovered/Resolved]
  - Off label use [Unknown]
  - Product use complaint [Not Recovered/Not Resolved]
  - Swelling face [Recovered/Resolved]
  - Swelling of eyelid [Recovered/Resolved]
  - Therapy change [Unknown]
  - Tooth extraction [Unknown]
  - Visual impairment [Recovered/Resolved]
  - Weight increased [Recovered/Resolved]
  - Endometriosis [Unknown]
  - Vitreous floaters [Not Recovered/Not Resolved]
  - Discomfort [Unknown]
